FAERS Safety Report 9851101 (Version 1)
Quarter: 2014Q1

REPORT INFORMATION
  Report Type: Spontaneous
  Country: US (occurrence: US)
  Receive Date: 20140128
  Receipt Date: 20140128
  Transmission Date: 20141002
  Serious: No
  Sender: FDA-Public Use
  Company Number: US-BAXTER-2014BAX003567

PATIENT
  Age: 71 Year
  Sex: Female

DRUGS (1)
  1. NEXTERONE_AMIODARONE, HYDROCHLORIDE 1.50 MG/ML_SOLUTION FOR INFUSION_B [Suspect]
     Indication: PRODUCT USED FOR UNKNOWN INDICATION

REACTIONS (3)
  - Drug hypersensitivity [Unknown]
  - Nausea [Unknown]
  - Vomiting [Unknown]
